FAERS Safety Report 17203171 (Version 1)
Quarter: 2019Q4

REPORT INFORMATION
  Report Type: Spontaneous
  Country: JP (occurrence: JP)
  Receive Date: 20191226
  Receipt Date: 20191226
  Transmission Date: 20200122
  Serious: Yes (Other)
  Sender: FDA-Public Use
  Company Number: NVSC2019JP079514

PATIENT
  Age: 68 Year
  Sex: Female

DRUGS (2)
  1. RIVAROXABAN [Suspect]
     Active Substance: RIVAROXABAN
     Indication: THROMBOSIS PROPHYLAXIS
     Dosage: UNK
     Route: 065
  2. ARGATROBAN. [Suspect]
     Active Substance: ARGATROBAN
     Indication: CEREBRAL ARTERY EMBOLISM
     Dosage: 10 MG/2ML
     Route: 065

REACTIONS (1)
  - Upper gastrointestinal haemorrhage [Unknown]
